FAERS Safety Report 11727603 (Version 3)
Quarter: 2017Q2

REPORT INFORMATION
  Report Type: Report from Study
  Country: None (occurrence: BR)
  Receive Date: 20151112
  Receipt Date: 20170602
  Transmission Date: 20170829
  Serious: Yes (Hospitalization, Other)
  Sender: FDA-Public Use
  Company Number: BR-ABBVIE-15K-020-1497801-00

PATIENT
  Age: 81 Year
  Sex: Female
  Weight: 60 kg

DRUGS (7)
  1. PERIVASC [Concomitant]
     Indication: VARICOSE VEIN
     Route: 048
  2. HUMIRA [Suspect]
     Active Substance: ADALIMUMAB
     Indication: RHEUMATOID ARTHRITIS
     Route: 058
     Dates: start: 20100102, end: 2015
  3. FUROSEMIDE. [Concomitant]
     Active Substance: FUROSEMIDE
     Indication: VARICOSE VEIN
     Route: 048
     Dates: start: 20150801
  4. FOLIC ACID. [Concomitant]
     Active Substance: FOLIC ACID
     Indication: ARTHRITIS
     Route: 048
     Dates: start: 201509
  5. BETAHISTINE DIHYDROCHLORIDE [Concomitant]
     Active Substance: BETAHISTINE
     Indication: LABYRINTHITIS
     Route: 048
     Dates: start: 201507
  6. METHOTREXATE. [Suspect]
     Active Substance: METHOTREXATE
     Indication: ARTHRITIS
     Route: 065
  7. LOSARTAN. [Concomitant]
     Active Substance: LOSARTAN
     Indication: HYPERTENSION
     Route: 048
     Dates: start: 2010

REACTIONS (6)
  - Viral upper respiratory tract infection [Recovered/Resolved]
  - Peripheral swelling [Unknown]
  - Influenza [Unknown]
  - Arrhythmia [Not Recovered/Not Resolved]
  - Device related infection [Recovered/Resolved]
  - Drug ineffective [Unknown]

NARRATIVE: CASE EVENT DATE: 201508
